FAERS Safety Report 7832450-5 (Version None)
Quarter: 2011Q4

REPORT INFORMATION
  Report Type: 
  Country: None (occurrence: None)
  Receive Date: 20111023
  Receipt Date: 20111003
  Transmission Date: 20120403
  Serious: Yes (Other)
  Sender: FDA-Public Use
  Company Number: PHEH2008US04335

PATIENT
  Sex: Female

DRUGS (8)
  1. AMOXICILLIN [Concomitant]
     Dosage: 500 MG
  2. AREDIA [Suspect]
  3. TYLENOL-500 [Concomitant]
  4. ARIMIDEX [Concomitant]
  5. TAMOXIFEN CITRATE [Concomitant]
  6. RADIATION THERAPY [Concomitant]
  7. VITAMIN E [Concomitant]
  8. FOSAMAX [Suspect]

REACTIONS (12)
  - OSTEONECROSIS OF JAW [None]
  - PAIN [None]
  - VISION BLURRED [None]
  - DISABILITY [None]
  - ANHEDONIA [None]
  - ARTHRITIS [None]
  - HYPOAESTHESIA [None]
  - DENTURE WEARER [None]
  - KIDNEY INFECTION [None]
  - HYPERCHOLESTEROLAEMIA [None]
  - INJURY [None]
  - ANXIETY [None]
